FAERS Safety Report 7051120-7 (Version None)
Quarter: 2010Q4

REPORT INFORMATION
  Report Type: 
  Country: None (occurrence: None)
  Receive Date: 20101019
  Receipt Date: 20101004
  Transmission Date: 20110411
  Serious: Yes (Hospitalization, Other)
  Sender: FDA-Public Use
  Company Number: GB-BAYER-201041996GPV

PATIENT
  Sex: Female

DRUGS (1)
  1. MIRENA [Suspect]
     Indication: PRODUCT USED FOR UNKNOWN INDICATION
     Route: 015
     Dates: start: 20090901, end: 20100901

REACTIONS (9)
  - ADVERSE DRUG REACTION [None]
  - DEPRESSED MOOD [None]
  - HORMONE LEVEL ABNORMAL [None]
  - MENOMETRORRHAGIA [None]
  - MOOD SWINGS [None]
  - PAIN [None]
  - PNEUMONIA [None]
  - PULMONARY THROMBOSIS [None]
  - VAGINAL DISCHARGE [None]
